FAERS Safety Report 7498822-6 (Version None)
Quarter: 2011Q2

REPORT INFORMATION
  Report Type: 
  Country: None (occurrence: None)
  Receive Date: 20110524
  Receipt Date: 20110510
  Transmission Date: 20111010
  Serious: Yes (Hospitalization)
  Sender: FDA-Public Use
  Company Number: JP-RANBAXY-2011RR-43117

PATIENT
  Sex: Female

DRUGS (7)
  1. MEQUITAZINE [Concomitant]
     Indication: PRODUCT USED FOR UNKNOWN INDICATION
     Dosage: UNK
     Route: 065
     Dates: start: 20100212, end: 20100422
  2. LORATADINE [Concomitant]
     Dosage: UNK
     Route: 065
     Dates: start: 20110127, end: 20110308
  3. FENOFIBRATE [Suspect]
     Indication: DYSLIPIDAEMIA
     Dosage: 200 MG, UNK
     Route: 048
     Dates: start: 20110113, end: 20110308
  4. LORATADINE [Concomitant]
     Indication: PRODUCT USED FOR UNKNOWN INDICATION
     Dosage: UNK
     Route: 065
     Dates: start: 20100212, end: 20100422
  5. VALSARTAN [Concomitant]
     Indication: PRODUCT USED FOR UNKNOWN INDICATION
     Dosage: UNK
     Route: 065
     Dates: start: 20081225
  6. MEQUITAZINE [Concomitant]
     Dosage: UNK
     Route: 065
     Dates: start: 20110127, end: 20110308
  7. ATORVASTATIN CALCIUM [Concomitant]
     Indication: PRODUCT USED FOR UNKNOWN INDICATION
     Dosage: UNK
     Route: 065
     Dates: start: 20090108, end: 20090319

REACTIONS (1)
  - HEPATITIS [None]
